FAERS Safety Report 4833427-4 (Version None)
Quarter: 2005Q4

REPORT INFORMATION
  Report Type: 
  Country: None (occurrence: None)
  Receive Date: 20051117
  Receipt Date: 20051107
  Transmission Date: 20060501
  Serious: Yes (Other)
  Sender: FDA-Public Use
  Company Number: EWC050845255

PATIENT
  Age: 88 Year
  Sex: Female

DRUGS (9)
  1. ZYPREXA [Suspect]
     Indication: PARANOIA
     Dosage: 5 MG/1 DAY
     Dates: start: 20041018, end: 20041028
  2. CORUNO (MOLSIDOMINE) [Concomitant]
  3. LANOXIN [Concomitant]
  4. OMEPRAZOLE [Concomitant]
  5. NICOUMALONE (ACENOCOUMAROL) [Concomitant]
  6. MIZOLLEN (MIZOLASTINE) [Concomitant]
  7. LASIX [Concomitant]
  8. SPASMOMEN (OTILONIUM BROMIDE) [Concomitant]
  9. MIXTARD HUMAN 70/30 [Concomitant]

REACTIONS (1)
  - RENAL FAILURE ACUTE [None]
